FAERS Safety Report 13887808 (Version 1)
Quarter: 2017Q3

REPORT INFORMATION
  Report Type: Spontaneous
  Country: US (occurrence: US)
  Receive Date: 20170821
  Receipt Date: 20170821
  Transmission Date: 20171127
  Serious: No
  Sender: FDA-Public Use
  Company Number: US-ACTELION-A-NJ2017-158214

PATIENT
  Age: 70 Year
  Sex: Female

DRUGS (2)
  1. UPTRAVI [Suspect]
     Active Substance: SELEXIPAG
     Indication: PULMONARY HYPERTENSION
     Dosage: 200 MCG, BID
     Route: 048
     Dates: start: 20170724, end: 20170808
  2. ADCIRCA [Concomitant]
     Active Substance: TADALAFIL

REACTIONS (10)
  - Sinusitis [Recovered/Resolved]
  - Joint stiffness [Recovered/Resolved]
  - Pharyngeal oedema [Recovered/Resolved]
  - Myalgia [Recovered/Resolved]
  - Temporal arteritis [Recovered/Resolved]
  - Dizziness [Recovered/Resolved]
  - Tongue erythema [Recovered/Resolved]
  - Dyspnoea [Recovered/Resolved]
  - Headache [Recovered/Resolved]
  - Facial pain [Recovered/Resolved]
